FAERS Safety Report 17916008 (Version 1)
Quarter: 2020Q2

REPORT INFORMATION
  Report Type: Spontaneous
  Country: US (occurrence: US)
  Receive Date: 20200618
  Receipt Date: 20200618
  Transmission Date: 20200714
  Serious: Yes (Hospitalization)
  Sender: FDA-Public Use
  Company Number: None

PATIENT
  Sex: Female

DRUGS (4)
  1. TEMOZOLOMIDE 100MG [Suspect]
     Active Substance: TEMOZOLOMIDE
     Indication: DRUG THERAPY
     Route: 048
     Dates: start: 20200214
  2. KEPPRA [Suspect]
     Active Substance: LEVETIRACETAM
  3. LORAZEPAM. [Concomitant]
     Active Substance: LORAZEPAM
  4. METOPROIOL [Concomitant]

REACTIONS (1)
  - Platelet count decreased [None]
